FAERS Safety Report 12662139 (Version 1)
Quarter: 2016Q3

REPORT INFORMATION
  Report Type: Report from Study
  Country: US (occurrence: US)
  Receive Date: 20160817
  Receipt Date: 20160817
  Transmission Date: 20161109
  Serious: Yes (Hospitalization)
  Sender: FDA-Public Use
  Company Number: US-KADMON PHARMACEUTICALS, LLC-KAD201608-003030

PATIENT
  Age: 63 Year
  Sex: Male
  Weight: 81.64 kg

DRUGS (2)
  1. VIEKIRA PAK [Suspect]
     Active Substance: DASABUVIR\OMBITASVIR\PARITAPREVIR\RITONAVIR
     Indication: HEPATITIS C
     Dosage: TWO PINK AND ONE BEIGE IN THE MORNING AND ONE BEIGE IN THE EVENING; TWO IN ONE DAY
     Route: 048
     Dates: start: 201606, end: 20160730
  2. RIBAVIRIN. [Suspect]
     Active Substance: RIBAVIRIN
     Route: 048
     Dates: start: 201606, end: 20160730

REACTIONS (11)
  - Sepsis [Unknown]
  - Pneumonia [Unknown]
  - Irritability [Unknown]
  - Decreased appetite [Unknown]
  - Carbon dioxide abnormal [Unknown]
  - Hiccups [Unknown]
  - Blood electrolytes abnormal [Unknown]
  - Asthenia [Unknown]
  - Weight decreased [Unknown]
  - Dehydration [Unknown]
  - Insomnia [Unknown]

NARRATIVE: CASE EVENT DATE: 201607
